FAERS Safety Report 4564415-3 (Version None)
Quarter: 2005Q1

REPORT INFORMATION
  Report Type: 
  Country: None (occurrence: None)
  Receive Date: 20050128
  Receipt Date: 20040109
  Transmission Date: 20050727
  Serious: No
  Sender: FDA-Public Use
  Company Number: US-GLAXOSMITHKLINE-A0492611A

PATIENT

DRUGS (1)
  1. EPIVIR [Suspect]
     Indication: ILL-DEFINED DISORDER
     Dosage: 300MG UNKNOWN
     Route: 048

REACTIONS (2)
  - HEADACHE [None]
  - NAUSEA [None]
